FAERS Safety Report 8423451 (Version 2)
Quarter: 2012Q4

REPORT INFORMATION
  Report Type: 
  Country: JP (occurrence: JP)
  Receive Date: 20120223
  Receipt Date: 20121018
  Transmission Date: 20130627
  Serious: Yes (Hospitalization)
  Sender: FDA-Public Use
  Company Number: PHHY2011JP64195

PATIENT
  Sex: Female
  Weight: 77 kg

DRUGS (3)
  1. TEGRETOL [Suspect]
     Indication: INFANTILE SPASMS
     Dosage: 1200 mg, daily
     Route: 048
  2. PHENOBARBITAL [Suspect]
     Indication: INFANTILE SPASMS
     Dosage: 140 mg, Daily
     Route: 048
  3. DEPAKENE-R [Suspect]
     Indication: INFANTILE SPASMS
     Dosage: 1400 mg, daily
     Route: 048
     Dates: end: 20100317

REACTIONS (2)
  - Epilepsy [Unknown]
  - Maternal exposure during pregnancy [Unknown]
